FAERS Safety Report 4813047-8 (Version None)
Quarter: 2005Q4

REPORT INFORMATION
  Report Type: 
  Country: None (occurrence: None)
  Receive Date: 20051028
  Receipt Date: 20050607
  Transmission Date: 20060501
  Serious: No
  Sender: FDA-Public Use
  Company Number: US-GLAXOSMITHKLINE-A0561602A

PATIENT
  Age: 71 Year
  Sex: Female
  Weight: 65.9 kg

DRUGS (6)
  1. ADVAIR DISKUS 100/50 [Suspect]
     Dosage: 1PUFF TWICE PER DAY
     Route: 055
     Dates: start: 20050309
  2. TOPROL-XL [Concomitant]
  3. NORVASC [Concomitant]
  4. PREDNISOLONE [Concomitant]
  5. HYDROCHLOROTHIAZIDE [Concomitant]
  6. LIPITOR [Concomitant]

REACTIONS (1)
  - WEIGHT INCREASED [None]
